FAERS Safety Report 4578589-1 (Version None)
Quarter: 2005Q1

REPORT INFORMATION
  Report Type: 
  Country: None (occurrence: None)
  Receive Date: 20050207
  Receipt Date: 20050207
  Transmission Date: 20050727
  Serious: Yes (Death)
  Sender: FDA-Public Use
  Company Number: None

PATIENT
  Sex: Female
  Weight: 53.8 kg

DRUGS (1)
  1. RAPAMYCIN [Suspect]
     Indication: PANCREATIC CARCINOMA
     Dosage: 2MG QD ORAL
     Route: 048
     Dates: start: 20041228, end: 20050114

REACTIONS (6)
  - ASTHENIA [None]
  - DISEASE PROGRESSION [None]
  - FATIGUE [None]
  - GENERALISED OEDEMA [None]
  - HEPATIC FAILURE [None]
  - RENAL FAILURE [None]
